FAERS Safety Report 7166865-8 (Version None)
Quarter: 2010Q4

REPORT INFORMATION
  Report Type: 
  Country: None (occurrence: None)
  Receive Date: 20101216
  Receipt Date: 20101209
  Transmission Date: 20110411
  Serious: Yes (Hospitalization, Other)
  Sender: FDA-Public Use
  Company Number: US-JNJFOC-20100703621

PATIENT
  Sex: Female

DRUGS (4)
  1. LEVAQUIN [Suspect]
     Indication: URINARY TRACT INFECTION
     Route: 048
  2. CIPROFLOXACIN [Suspect]
     Indication: URINARY TRACT INFECTION
     Route: 065
  3. LEXAPRO [Concomitant]
     Indication: ANTIDEPRESSANT THERAPY
  4. LEXAPRO [Concomitant]
     Indication: ANXIETY

REACTIONS (3)
  - EPICONDYLITIS [None]
  - JOINT SWELLING [None]
  - TENDONITIS [None]
